FAERS Safety Report 7254520-5 (Version None)
Quarter: 2011Q1

REPORT INFORMATION
  Report Type: 
  Country: None (occurrence: None)
  Receive Date: 20110129
  Receipt Date: 20100428
  Transmission Date: 20110831
  Serious: No
  Sender: FDA-Public Use
  Company Number: US-ABBOTT-10P-163-0641408-00

PATIENT
  Sex: Female
  Weight: 59.02 kg

DRUGS (3)
  1. IBUPROFEN [Concomitant]
     Indication: PSORIATIC ARTHROPATHY
  2. HUMIRA [Suspect]
     Indication: PSORIATIC ARTHROPATHY
     Route: 058
     Dates: start: 20091201
  3. MOBIC [Concomitant]
     Indication: PSORIATIC ARTHROPATHY

REACTIONS (3)
  - DIZZINESS [None]
  - COLD SWEAT [None]
  - DRUG INEFFECTIVE [None]
